FAERS Safety Report 4979334-8 (Version None)
Quarter: 2006Q2

REPORT INFORMATION
  Report Type: 
  Country: None (occurrence: None)
  Receive Date: 20060421
  Receipt Date: 20051130
  Transmission Date: 20061013
  Serious: Yes (Hospitalization, Other)
  Sender: FDA-Public Use
  Company Number: US-MERCK-0512USA00273

PATIENT
  Age: 50 Year
  Sex: Male
  Weight: 125 kg

DRUGS (2)
  1. VIOXX [Suspect]
     Indication: ARTHRITIS
     Route: 048
     Dates: start: 20000801, end: 20040724
  2. VIOXX [Suspect]
     Indication: ARTHRALGIA
     Route: 048
     Dates: start: 20000801, end: 20040724

REACTIONS (12)
  - EMOTIONAL DISORDER [None]
  - INFARCTION [None]
  - INJURY [None]
  - LOSS OF CONSCIOUSNESS [None]
  - OVERDOSE [None]
  - PAIN [None]
  - PAIN MANAGEMENT [None]
  - PERIPHERAL VASCULAR DISORDER [None]
  - PHARYNGITIS [None]
  - PULMONARY EMBOLISM [None]
  - RECTAL HAEMORRHAGE [None]
  - THROMBOSIS [None]
